FAERS Safety Report 15006561 (Version 2)
Quarter: 2019Q2

REPORT INFORMATION
  Report Type: Report from Study
  Country: US (occurrence: US)
  Receive Date: 20180613
  Receipt Date: 20190617
  Transmission Date: 20190711
  Serious: No
  Sender: FDA-Public Use
  Company Number: US-US WORLDMEDS, LLC-USW201708-001257

PATIENT
  Age: 46 Year
  Sex: Male

DRUGS (13)
  1. ASA [Concomitant]
     Active Substance: ASPIRIN
  2. COGENTIN [Concomitant]
     Active Substance: BENZTROPINE MESYLATE
  3. KEFLEX [Concomitant]
     Active Substance: CEPHALEXIN
  4. NORCO [Concomitant]
     Active Substance: ACETAMINOPHEN\HYDROCODONE BITARTRATE
  5. ENALAPRIL [Concomitant]
     Active Substance: ENALAPRIL
  6. RYTARY [Concomitant]
     Active Substance: CARBIDOPA\LEVODOPA
  7. PREDNISONE. [Concomitant]
     Active Substance: PREDNISONE
  8. CLARITIN [Concomitant]
     Active Substance: LORATADINE
  9. HYDROCHLOROTHIAZIDE. [Concomitant]
     Active Substance: HYDROCHLOROTHIAZIDE
  10. APOKYN [Suspect]
     Active Substance: APOMORPHINE HYDROCHLORIDE
     Indication: PARKINSON^S DISEASE
     Route: 058
     Dates: start: 20170828
  11. APOKYN [Suspect]
     Active Substance: APOMORPHINE HYDROCHLORIDE
     Route: 058
  12. REQUIP [Concomitant]
     Active Substance: ROPINIROLE HYDROCHLORIDE
  13. ASPIRIN. [Concomitant]
     Active Substance: ASPIRIN

REACTIONS (3)
  - Somnolence [Recovered/Resolved]
  - Sedation [Recovered/Resolved]
  - Injection site bruising [Not Recovered/Not Resolved]

NARRATIVE: CASE EVENT DATE: 201708
